FAERS Safety Report 21447855 (Version 1)
Quarter: 2022Q4

REPORT INFORMATION
  Report Type: Spontaneous
  Country: ES (occurrence: ES)
  Receive Date: 20221012
  Receipt Date: 20221012
  Transmission Date: 20230113
  Serious: Yes (Life-Threatening, Hospitalization)
  Sender: FDA-Public Use
  Company Number: None

PATIENT
  Age: 59 Year
  Sex: Female

DRUGS (6)
  1. MIRTAZAPINE [Interacting]
     Active Substance: MIRTAZAPINE
     Indication: Psychotic disorder
     Dosage: MIRTAZAPINA ( , UNIT DOSE :  30 MG  , FREQUENCY TIME : 1 DAY  , DURATION :  414 DAYS
     Dates: start: 20210701, end: 20220818
  2. ESCITALOPRAM [Interacting]
     Active Substance: ESCITALOPRAM OXALATE
     Indication: Mixed anxiety and depressive disorder
     Dosage: ESCITALOPRAM (2858A) ,. UNIT DOSE : 10 MG   , FREQUENCY TIME : 1 DAY  , DURATION : 108 DAYS
     Dates: start: 20220501, end: 20220816
  3. ABILIFY [Interacting]
     Active Substance: ARIPIPRAZOLE
     Indication: Psychotic disorder
     Dosage: 28 TABLETS , FORM STRENGTH : 5 MG , UNIT DOSE : 5 MG   , FREQUENCY TIME : 1 DAY  , DURATION : 288 DA
     Dates: start: 20211101, end: 20220816
  4. DIAZEPAM [Concomitant]
     Active Substance: DIAZEPAM
     Indication: Mixed anxiety and depressive disorder
     Dosage: DIAZEPAM (730A)  , UNIT DOSE : 30 MG   , FREQUENCY TIME : 1 DAY  , DURATION : 288 DAYS
     Dates: start: 20211101, end: 20220816
  5. AMOXICILLIN ARDINE [Concomitant]
     Indication: Otitis media
     Dosage: POWDER FOR ORAL SUSPENSION IN SACHETS EFG, 20 SACHETS , FORM STRENGTH : 500 MG , UNIT DOSE :  500 MG
     Dates: start: 20220815, end: 20220816
  6. LORAZEPAM [Concomitant]
     Active Substance: LORAZEPAM
     Indication: Mixed anxiety and depressive disorder
     Dosage: LORAZEPAM (1864A) , UNIT DOSE : 5 MG   , FREQUENCY TIME : 1 DAY , DURATION : 412 DAYS
     Dates: start: 20210701, end: 20220816

REACTIONS (5)
  - Acute respiratory failure [Recovered/Resolved]
  - Lactic acidosis [Recovered/Resolved]
  - Acute kidney injury [Recovering/Resolving]
  - Rhabdomyolysis [Recovering/Resolving]
  - Drug interaction [Unknown]

NARRATIVE: CASE EVENT DATE: 20220816
